FAERS Safety Report 9725423 (Version 1)
Quarter: 2013Q4

REPORT INFORMATION
  Report Type: Spontaneous
  Country: US (occurrence: None)
  Receive Date: 20131129
  Receipt Date: 20131129
  Transmission Date: 20140711
  Serious: Yes (Life-Threatening, Hospitalization)
  Sender: FDA-Public Use
  Company Number: 2013P1021379

PATIENT
  Age: 15 Year
  Sex: Female

DRUGS (2)
  1. METFORMIN [Suspect]
     Dosage: 75,000 MG; X1; PO
     Route: 048
  2. QUETIAPINE [Suspect]
     Dosage: 3,000 MG; X1; PO
     Route: 048

REACTIONS (4)
  - Somnolence [None]
  - Vomiting [None]
  - Overdose [None]
  - Hypoglycaemia [None]
